FAERS Safety Report 20901861 (Version 1)
Quarter: 2022Q2

REPORT INFORMATION
  Report Type: Spontaneous
  Country: CN (occurrence: None)
  Receive Date: 20220601
  Receipt Date: 20220601
  Transmission Date: 20220721
  Serious: Yes (Other)
  Sender: FDA-Public Use
  Company Number: 2022A199824

PATIENT
  Age: 24754 Day
  Sex: Female

DRUGS (4)
  1. OSIMERTINIB MESYLATE [Suspect]
     Active Substance: OSIMERTINIB MESYLATE
     Indication: Neoplasm malignant
     Route: 048
     Dates: start: 20220225, end: 20220225
  2. ZOLEDRONIC ACID [Concomitant]
     Active Substance: ZOLEDRONIC ACID
     Indication: Neoplasm malignant
     Dates: start: 20220228, end: 20220228
  3. LOXOPROFEN SODIUM [Concomitant]
     Active Substance: LOXOPROFEN SODIUM
     Indication: Neoplasm malignant
     Route: 048
     Dates: start: 20220228, end: 20220228
  4. CALCIUM CARBONATE D3 [Concomitant]
     Indication: Neoplasm malignant
     Route: 048
     Dates: start: 20220228, end: 20220228

REACTIONS (1)
  - Myelosuppression [Recovering/Resolving]

NARRATIVE: CASE EVENT DATE: 20220228
